FAERS Safety Report 6716023-3 (Version None)
Quarter: 2010Q2

REPORT INFORMATION
  Report Type: 
  Country: None (occurrence: None)
  Receive Date: 20100506
  Receipt Date: 20100506
  Transmission Date: 20101027
  Serious: Yes (Death)
  Sender: FDA-Public Use
  Company Number: None

PATIENT
  Age: 18 Year
  Sex: Male
  Weight: 74.8435 kg

DRUGS (4)
  1. OVACE PLUS WASH SODIUM SULFACETAMIDE 10% TIBER LABORATORIES [Suspect]
     Indication: ACNE
     Dosage: 1/2 -1 TSP TWICE DAILY TOP
     Route: 061
     Dates: start: 20090101, end: 20100304
  2. ERYTHROMYCIN TOPICAL GEL [Concomitant]
  3. PROACTIVE SOLUTION [Concomitant]
  4. ZYRTEC [Concomitant]

REACTIONS (1)
  - COMPLETED SUICIDE [None]
